FAERS Safety Report 5663818-3 (Version None)
Quarter: 2008Q1

REPORT INFORMATION
  Report Type: 
  Country: None (occurrence: None)
  Receive Date: 20080307
  Receipt Date: 20080227
  Transmission Date: 20080703
  Serious: Yes (Other)
  Sender: FDA-Public Use
  Company Number: 2008004925

PATIENT
  Sex: Female

DRUGS (1)
  1. NICORETTE [Suspect]
     Dosage: TRANSDERMAL
     Route: 062

REACTIONS (3)
  - APPLICATION SITE PRURITUS [None]
  - COLD SWEAT [None]
  - MALAISE [None]
